FAERS Safety Report 15157851 (Version 3)
Quarter: 2020Q3

REPORT INFORMATION
  Report Type: Spontaneous
  Country: US (occurrence: US)
  Receive Date: 20180718
  Receipt Date: 20200901
  Transmission Date: 20201102
  Serious: No
  Sender: FDA-Public Use
  Company Number: US-PFIZER INC-2018287103

PATIENT
  Age: 69 Year
  Sex: Female
  Weight: 52 kg

DRUGS (2)
  1. ESTRING [Suspect]
     Active Substance: ESTRADIOL
     Indication: VAGINAL DISORDER
     Dosage: 2 MG, UNK (LEAVE IN 3 MONTHS)
     Route: 067
  2. SYNTHROID [Concomitant]
     Active Substance: LEVOTHYROXINE SODIUM
     Indication: HYPOTHYROIDISM
     Dosage: 75 UG, DAILY

REACTIONS (3)
  - Vaginal discharge [Unknown]
  - Product storage error [Unknown]
  - Poor quality product administered [Unknown]

NARRATIVE: CASE EVENT DATE: 2018
